FAERS Safety Report 12835616 (Version 3)
Quarter: 2016Q4

REPORT INFORMATION
  Report Type: Spontaneous
  Country: US (occurrence: US)
  Receive Date: 20161011
  Receipt Date: 20161129
  Transmission Date: 20170207
  Serious: Yes (Hospitalization, Other)
  Sender: FDA-Public Use
  Company Number: US-ASTRAZENECA-2016SF05617

PATIENT
  Age: 932 Month
  Sex: Female
  Weight: 59.4 kg

DRUGS (6)
  1. COD LIVER OIL [Concomitant]
     Active Substance: COD LIVER OIL
     Dosage: DAILY
     Route: 048
  2. ATENOLOL. [Suspect]
     Active Substance: ATENOLOL
     Indication: HYPERTENSION
     Route: 048
     Dates: start: 2008
  3. AMLODIPINE [Concomitant]
     Active Substance: AMLODIPINE BESYLATE
     Indication: HYPERTENSION
     Route: 048
     Dates: start: 201609
  4. PRADAXA [Concomitant]
     Active Substance: DABIGATRAN ETEXILATE MESYLATE
     Indication: PROCOAGULANT THERAPY
     Route: 048
     Dates: start: 201606
  5. LOSARTAN. [Concomitant]
     Active Substance: LOSARTAN
     Indication: HYPERTENSION
     Route: 048
     Dates: start: 201608
  6. SYMBICORT [Suspect]
     Active Substance: BUDESONIDE\FORMOTEROL FUMARATE DIHYDRATE
     Indication: LUNG DISORDER
     Dosage: 160/4.5 MCG, 2 PUFFS 2 TIMES DAILY
     Route: 055
     Dates: start: 201607

REACTIONS (8)
  - Hypertension [Unknown]
  - Cardiac disorder [Unknown]
  - Product packaging quantity issue [Unknown]
  - Anxiety [Unknown]
  - Off label use [Unknown]
  - Atrial fibrillation [Unknown]
  - Product use issue [Unknown]
  - Lung disorder [Unknown]

NARRATIVE: CASE EVENT DATE: 201210
